FAERS Safety Report 8825428 (Version 1)
Quarter: 2012Q4

REPORT INFORMATION
  Report Type: 
  Country: FR (occurrence: FR)
  Receive Date: 20121004
  Receipt Date: 20121004
  Transmission Date: 20130627
  Serious: Yes (Hospitalization)
  Sender: FDA-Public Use
  Company Number: FR-JNJFOC-20120911061

PATIENT
  Age: 60 Year
  Sex: Female

DRUGS (12)
  1. EPITOMAX [Suspect]
     Indication: PARTIAL SEIZURES
     Route: 048
     Dates: end: 201204
  2. EPITOMAX [Suspect]
     Indication: PARTIAL SEIZURES
     Dosage: 50mg (one dose in the morning and half a dose in the evening).
     Route: 048
  3. EPITOMAX [Suspect]
     Indication: PARTIAL SEIZURES
     Route: 048
     Dates: start: 20090709
  4. TEGRETOL [Suspect]
     Indication: PRODUCT USED FOR UNKNOWN INDICATION
     Route: 065
  5. TEGRETOL [Suspect]
     Indication: PRODUCT USED FOR UNKNOWN INDICATION
     Route: 065
  6. KARDEGIC [Concomitant]
     Indication: PRODUCT USED FOR UNKNOWN INDICATION
     Route: 065
  7. TAHOR [Concomitant]
     Indication: PRODUCT USED FOR UNKNOWN INDICATION
     Route: 065
  8. SIMVASTATINE [Concomitant]
     Indication: PRODUCT USED FOR UNKNOWN INDICATION
     Route: 065
  9. SPIRONOLACTONE [Concomitant]
     Indication: PRODUCT USED FOR UNKNOWN INDICATION
     Route: 065
  10. LERCAN [Concomitant]
     Indication: PRODUCT USED FOR UNKNOWN INDICATION
     Route: 065
  11. DEPAKINE [Concomitant]
     Indication: PRODUCT USED FOR UNKNOWN INDICATION
     Route: 065
  12. DEPAKINE [Concomitant]
     Indication: PRODUCT USED FOR UNKNOWN INDICATION
     Route: 065

REACTIONS (5)
  - Weight decreased [Recovered/Resolved]
  - Balance disorder [Unknown]
  - Epilepsy [Unknown]
  - Asthenia [Unknown]
  - Vertigo [Unknown]
